FAERS Safety Report 15778890 (Version 4)
Quarter: 2019Q1

REPORT INFORMATION
  Report Type: Spontaneous
  Country: ET (occurrence: ET)
  Receive Date: 20190101
  Receipt Date: 20190128
  Transmission Date: 20190417
  Serious: Yes (Death)
  Sender: FDA-Public Use
  Company Number: ET-PFIZER INC-2018533409

PATIENT
  Age: 7 Year
  Sex: Female

DRUGS (1)
  1. ZITHROMAX [Suspect]
     Active Substance: AZITHROMYCIN DIHYDRATE
     Indication: TRACHOMA
     Dosage: 500 MG, STAT (AT ONCE)
     Route: 048
     Dates: start: 20181220, end: 20181220

REACTIONS (3)
  - Vomiting [Unknown]
  - Product use issue [Unknown]
  - Choking [Fatal]

NARRATIVE: CASE EVENT DATE: 20181220
